FAERS Safety Report 4960475-6 (Version None)
Quarter: 2006Q2

REPORT INFORMATION
  Report Type: 
  Country: None (occurrence: None)
  Receive Date: 20060403
  Receipt Date: 20060328
  Transmission Date: 20061013
  Serious: Yes (Other)
  Sender: FDA-Public Use
  Company Number: PHEH2006US04130

PATIENT
  Age: 43 Year
  Sex: Female

DRUGS (2)
  1. ZELNORM [Suspect]
     Indication: IRRITABLE BOWEL SYNDROME
     Dosage: 6 MG, BID
     Route: 048
     Dates: start: 20040101, end: 20060201
  2. ZELNORM [Suspect]
     Dosage: 1/2 6 MG BID
     Route: 048

REACTIONS (4)
  - COLONIC POLYP [None]
  - DIARRHOEA [None]
  - POLYP COLORECTAL [None]
  - POLYPECTOMY [None]
